FAERS Safety Report 6512088-2 (Version None)
Quarter: 2009Q4

REPORT INFORMATION
  Report Type: 
  Country: None (occurrence: None)
  Receive Date: 20091222
  Receipt Date: 20090601
  Transmission Date: 20100525
  Serious: No
  Sender: FDA-Public Use
  Company Number: US-ASTRAZENECA-2009UW13918

PATIENT
  Age: 61 Year
  Sex: Female

DRUGS (3)
  1. CRESTOR [Suspect]
     Route: 048
  2. CALCIUM [Concomitant]
     Indication: OSTEOPOROSIS
  3. OVER THE COUNTER MED [Concomitant]
     Indication: ARTHRITIS

REACTIONS (1)
  - DIARRHOEA [None]
